FAERS Safety Report 15267034 (Version 1)
Quarter: 2018Q3

REPORT INFORMATION
  Report Type: Spontaneous
  Country: JP (occurrence: JP)
  Receive Date: 20180810
  Receipt Date: 20180810
  Transmission Date: 20181010
  Serious: Yes (Other)
  Sender: FDA-Public Use
  Company Number: JP-AKRON, INC.-2053569

PATIENT
  Age: 83 Year
  Sex: Female

DRUGS (1)
  1. ZIOPTAN [Suspect]
     Active Substance: TAFLUPROST
     Route: 047
     Dates: start: 20180713

REACTIONS (1)
  - Angina pectoris [Unknown]
